FAERS Safety Report 4725964-8 (Version None)
Quarter: 2005Q3

REPORT INFORMATION
  Report Type: 
  Country: None (occurrence: None)
  Receive Date: 20050727
  Receipt Date: 20041227
  Transmission Date: 20060218
  Serious: Yes (Death, Life-Threatening, Hospitalization)
  Sender: FDA-Public Use
  Company Number: FR-GLAXOSMITHKLINE-B0363027A

PATIENT
  Age: 83 Year
  Sex: Female

DRUGS (5)
  1. LAMICTAL [Suspect]
     Indication: EPILEPSY
     Route: 048
     Dates: start: 20041118, end: 20041218
  2. DEPAKENE [Concomitant]
     Indication: EPILEPSY
     Route: 048
  3. PREVISCAN [Concomitant]
  4. POTASSIUM CHLORIDE [Concomitant]
     Dosage: 1UD PER DAY
  5. CLONAZEPAM [Concomitant]
     Route: 042

REACTIONS (10)
  - BRONCHIAL OBSTRUCTION [None]
  - CONJUNCTIVITIS [None]
  - ESCHERICHIA URINARY TRACT INFECTION [None]
  - GENERAL PHYSICAL HEALTH DETERIORATION [None]
  - PYREXIA [None]
  - RASH MORBILLIFORM [None]
  - SKIN DISORDER [None]
  - STOMATITIS HAEMORRHAGIC [None]
  - SWELLING FACE [None]
  - TOXIC EPIDERMAL NECROLYSIS [None]
